FAERS Safety Report 12458316 (Version 2)
Quarter: 2016Q3

REPORT INFORMATION
  Report Type: Spontaneous
  Country: US (occurrence: US)
  Receive Date: 20160613
  Receipt Date: 20160708
  Transmission Date: 20161109
  Serious: No
  Sender: FDA-Public Use
  Company Number: US-ASTRAZENECA-2016SE62004

PATIENT
  Age: 82 Year
  Sex: Female
  Weight: 73 kg

DRUGS (20)
  1. NEXIUM 24HR [Suspect]
     Active Substance: ESOMEPRAZOLE MAGNESIUM
     Indication: GASTROOESOPHAGEAL REFLUX DISEASE
     Route: 048
     Dates: start: 20160522
  2. LOSARTAN. [Concomitant]
     Active Substance: LOSARTAN
     Indication: HYPERTENSION
     Dosage: 50 MG, 1X/DAY BY MOUTH
     Route: 048
  3. KRILL OMEGA RED OIL [Concomitant]
     Indication: BONE DISORDER
     Dosage: 1X/DAY; 500MG/500MG BY MOUTH ONCE DAILY
     Route: 048
  4. PREVAGEN [Concomitant]
     Active Substance: DIETARY SUPPLEMENT
     Indication: MEMORY IMPAIRMENT
     Dosage: 10 MG, 1X/DAY BY MOUTH
     Route: 048
  5. JOINT FORMULA [Concomitant]
     Indication: CARDIAC DISORDER
     Dosage: 1X/DAY BY MOUTH
     Route: 048
  6. PAPAYA ENZYME [Concomitant]
     Indication: EYE DISORDER
     Dosage: 1X/DAY BY MOUTH
     Route: 048
  7. PAPAYA ENZYME [Concomitant]
     Indication: DYSPEPSIA
     Dosage: 1X/DAY BY MOUTH
     Route: 048
  8. VITAMIN B12 [Concomitant]
     Active Substance: CYANOCOBALAMIN
     Indication: BLOOD DISORDER
     Dosage: 1500 UG, 1X/DAY; 1500MCG BY MOUTH ONCE DAILY
     Route: 048
  9. TURMERIC [Concomitant]
     Active Substance: TURMERIC
     Indication: ARTHRALGIA
     Dosage: 1050 MG, 1X/DAY BY MOUTH
     Route: 048
  10. TIMOLOL. [Concomitant]
     Active Substance: TIMOLOL
     Indication: GLAUCOMA
     Dosage: 1 DF, 1X/DAY; 1 DROP IN EACH EYE IN THE MORNING
     Route: 031
     Dates: start: 20130319
  11. GARLIC. [Concomitant]
     Active Substance: GARLIC
     Indication: BLOOD CHOLESTEROL
     Dosage: 1X/DAY BY MOUTH
     Route: 048
  12. ATORVASTATIN [Concomitant]
     Active Substance: ATORVASTATIN
     Indication: BLOOD CHOLESTEROL
     Dosage: 1 DF, 1X/DAY
  13. PROBIOTIC [Concomitant]
     Active Substance: PROBIOTICS NOS
     Indication: DYSPEPSIA
     Dosage: AS NEEDED
  14. NEXIUM 24HR [Suspect]
     Active Substance: ESOMEPRAZOLE MAGNESIUM
     Indication: GASTROOESOPHAGEAL REFLUX DISEASE
     Route: 048
     Dates: start: 20160518
  15. BABY ASPIRIN [Concomitant]
     Active Substance: ASPIRIN
     Indication: BLOOD DISORDER
     Dosage: 81 MG, 1X/DAY BY MOUTH
     Route: 048
  16. OCUVITE [Concomitant]
     Active Substance: VITAMINS
     Indication: EYE DISORDER
     Dosage: 1X/DAY BY MOUTH
     Route: 048
  17. JOINT FORMULA [Concomitant]
     Indication: ARTHROPATHY
     Dosage: 1X/DAY BY MOUTH
     Route: 048
  18. LATANOPROST. [Concomitant]
     Active Substance: LATANOPROST
     Indication: GLAUCOMA
     Dosage: 1 DF, 1X/DAY; 1 DROP IN EACH EYE AT NIGHT
     Route: 031
  19. OMEGA 3 [Concomitant]
     Active Substance: OMEGA-3 FATTY ACIDS
     Indication: BONE DISORDER
     Dosage: 1000 IU, 1X/DAY BY MOUTH
     Route: 048
  20. RHODIOLA ROSEA [Concomitant]
     Active Substance: HERBALS
     Indication: NEUROPATHY PERIPHERAL
     Dosage: 340 MG, 1X/DAY BY MOUTH
     Route: 048

REACTIONS (2)
  - Dysphonia [Unknown]
  - Off label use [Unknown]

NARRATIVE: CASE EVENT DATE: 20160518
